FAERS Safety Report 17810528 (Version 3)
Quarter: 2023Q4

REPORT INFORMATION
  Report Type: Report from Study
  Country: IT (occurrence: IT)
  Receive Date: 20200521
  Receipt Date: 20231027
  Transmission Date: 20240110
  Serious: Yes (Other)
  Sender: FDA-Public Use
  Company Number: IT-TEVA-2020-IT-1224741

PATIENT
  Age: 68 Year
  Sex: Female

DRUGS (9)
  1. OXYCODONE [Interacting]
     Active Substance: OXYCODONE
     Indication: Fibromyalgia
     Dosage: UNK
     Route: 065
  2. OXYCODONE [Interacting]
     Active Substance: OXYCODONE
     Indication: Pain
  3. OXYCODONE [Interacting]
     Active Substance: OXYCODONE
     Indication: Spinal stenosis
  4. PREGABALIN [Interacting]
     Active Substance: PREGABALIN
     Indication: Pain
     Dosage: UNK
     Route: 065
  5. PREGABALIN [Interacting]
     Active Substance: PREGABALIN
     Indication: Spinal stenosis
  6. PREGABALIN [Interacting]
     Active Substance: PREGABALIN
     Indication: Fibromyalgia
  7. .DELTA.8-TETRAHYDROCANNABINOL\HERBALS [Interacting]
     Active Substance: .DELTA.8-TETRAHYDROCANNABINOL\HERBALS
     Indication: Fibromyalgia
     Dosage: 100 MILLIGRAM, ONCE A DAY
     Route: 048
  8. .DELTA.8-TETRAHYDROCANNABINOL\HERBALS [Interacting]
     Active Substance: .DELTA.8-TETRAHYDROCANNABINOL\HERBALS
     Indication: Pain
  9. .DELTA.8-TETRAHYDROCANNABINOL\HERBALS [Interacting]
     Active Substance: .DELTA.8-TETRAHYDROCANNABINOL\HERBALS
     Indication: Spinal stenosis

REACTIONS (11)
  - Drug interaction [Unknown]
  - Tachyarrhythmia [Recovered/Resolved]
  - Hypertension [Recovered/Resolved]
  - Catastrophic reaction [Recovered/Resolved]
  - Illusion [Recovered/Resolved]
  - Morbid thoughts [Recovered/Resolved]
  - Negative thoughts [Recovered/Resolved]
  - Feeling abnormal [Recovered/Resolved]
  - Thinking abnormal [Unknown]
  - Mood altered [Unknown]
  - Accidental overdose [Unknown]
